FAERS Safety Report 9904236 (Version 2)
Quarter: 2014Q1

REPORT INFORMATION
  Report Type: Report from Study
  Country: US (occurrence: US)
  Receive Date: 20140218
  Receipt Date: 20140218
  Transmission Date: 20141002
  Serious: Yes (Hospitalization)
  Sender: FDA-Public Use
  Company Number: US-ASTRAZENECA-2014SE02097

PATIENT
  Age: 78 Year
  Sex: Female
  Weight: 63.6 kg

DRUGS (8)
  1. AZD6244 [Suspect]
     Indication: MALIGNANT MELANOMA
     Route: 048
     Dates: start: 20130820, end: 20131125
  2. CRESTOR [Suspect]
     Indication: HYPERLIPIDAEMIA
     Route: 048
     Dates: end: 20131125
  3. DOCUSATE SODIUM [Concomitant]
  4. METOPROLOL [Concomitant]
  5. HYDROCHLOROTHIAZIDE [Concomitant]
  6. MELOXICAM [Concomitant]
  7. ATIVAN [Concomitant]
  8. TYLENOL [Concomitant]

REACTIONS (3)
  - Back pain [Recovering/Resolving]
  - Anaemia [Recovered/Resolved]
  - Hypokalaemia [Recovered/Resolved]
